FAERS Safety Report 5194834-6 (Version None)
Quarter: 2006Q4

REPORT INFORMATION
  Report Type: 
  Country: None (occurrence: None)
  Receive Date: 20061227
  Receipt Date: 20061213
  Transmission Date: 20070319
  Serious: Yes (Hospitalization)
  Sender: FDA-Public Use
  Company Number: 200612IM000682

PATIENT
  Sex: Female

DRUGS (1)
  1. ACTIMMUNE [Suspect]
     Indication: IDIOPATHIC PULMONARY FIBROSIS
     Dosage: TIW, SUBCUTANEOUS
     Route: 058
     Dates: start: 20050901

REACTIONS (8)
  - CONFUSIONAL STATE [None]
  - DEEP VEIN THROMBOSIS [None]
  - DISORIENTATION [None]
  - HYPOGLYCAEMIA [None]
  - INCORRECT DOSE ADMINISTERED [None]
  - LETHARGY [None]
  - MENTAL STATUS CHANGES [None]
  - WRONG TECHNIQUE IN DRUG USAGE PROCESS [None]
